FAERS Safety Report 4322481-4 (Version None)
Quarter: 2004Q1

REPORT INFORMATION
  Report Type: 
  Country: None (occurrence: None)
  Receive Date: 20040319
  Receipt Date: 20040308
  Transmission Date: 20041129
  Serious: Yes (Death)
  Sender: FDA-Public Use
  Company Number: CA-JNJFOC-20040301842

PATIENT
  Age: 58 Year
  Sex: Male

DRUGS (9)
  1. CLADRIBINE [Suspect]
     Indication: HAIRY CELL LEUKAEMIA
     Dosage: , 1 IN 5 DAY
  2. LEVOFLOXACIN [Concomitant]
  3. CIPROFLOXACIN [Concomitant]
  4. AMOXICILLIN-CLAVULANATE (CLAVULIN) [Concomitant]
  5. CEFOTAXIME SODIUM [Concomitant]
  6. AZITHROMYCIN [Concomitant]
  7. PIPERACILLIN [Concomitant]
  8. AMPHOTERICIN B DEOXYCHOLATE (AMPHOTERICIN B) [Concomitant]
  9. CHEMOTHERAPY (ANTINEOPLASTIC AGENTS) [Concomitant]

REACTIONS (22)
  - BONE MARROW DISORDER [None]
  - CEREBRAL INFARCTION [None]
  - CONDITION AGGRAVATED [None]
  - DEPRESSED LEVEL OF CONSCIOUSNESS [None]
  - DYSPNOEA [None]
  - EMBOLISM [None]
  - FUNGAL INFECTION [None]
  - HEPATIC ENZYME INCREASED [None]
  - HEPATIC INFARCTION [None]
  - HEPATITIS FULMINANT [None]
  - HYPERBILIRUBINAEMIA [None]
  - LUNG CONSOLIDATION [None]
  - LYMPHOPENIA [None]
  - MALAISE [None]
  - PARALYSIS FLACCID [None]
  - PRODUCTIVE COUGH [None]
  - PULMONARY INFARCTION [None]
  - PYREXIA [None]
  - RENAL INFARCT [None]
  - RESPIRATORY DISTRESS [None]
  - SCAN ABDOMEN ABNORMAL [None]
  - SPLENIC INFARCTION [None]
